FAERS Safety Report 9178659 (Version 1)
Quarter: 2013Q1

REPORT INFORMATION
  Report Type: Report from Study
  Country: CA (occurrence: CA)
  Receive Date: 20130321
  Receipt Date: 20130321
  Transmission Date: 20140127
  Serious: Yes (Other)
  Sender: FDA-Public Use
  Company Number: CA-ROCHE-1204954

PATIENT
  Age: 63 Year
  Sex: Female
  Weight: 72.6 kg

DRUGS (6)
  1. TOCILIZUMAB [Suspect]
     Indication: RHEUMATOID ARTHRITIS
     Dosage: LAST DOSE PRIOR TO SAE: 01/MAR/2013
     Route: 042
     Dates: start: 20120816
  2. METHOTREXATE [Concomitant]
     Route: 065
     Dates: start: 20130216
  3. ACETAMINOPHEN [Concomitant]
     Route: 065
     Dates: start: 2012
  4. NAPROXEN [Concomitant]
     Route: 065
     Dates: start: 20120209, end: 20121029
  5. PREDNISONE [Concomitant]
     Route: 065
     Dates: start: 20060501
  6. IBUPROFEN [Concomitant]
     Route: 065
     Dates: start: 20121108

REACTIONS (1)
  - Myocardial infarction [Recovered/Resolved]
